FAERS Safety Report 9536218 (Version 3)
Quarter: 2013Q4

REPORT INFORMATION
  Report Type: Report from Study
  Country: DE (occurrence: DE)
  Receive Date: 20130919
  Receipt Date: 20131218
  Transmission Date: 20140711
  Serious: Yes (Hospitalization, Other)
  Sender: FDA-Public Use
  Company Number: DE-ROCHE-1275734

PATIENT
  Age: 66 Year
  Sex: Female
  Weight: 94 kg

DRUGS (14)
  1. TRASTUZUMAB [Suspect]
     Indication: BREAST CANCER
     Route: 042
     Dates: start: 20110726, end: 20111019
  2. TRASTUZUMAB [Suspect]
     Dosage: 6X
     Route: 042
     Dates: start: 20081020, end: 200902
  3. TRASTUZUMAB [Suspect]
     Route: 042
     Dates: start: 200905, end: 200910
  4. TRASTUZUMAB [Suspect]
     Route: 042
     Dates: start: 20111126
  5. TRASTUZUMAB [Suspect]
     Route: 011
     Dates: start: 20130304, end: 20130614
  6. TRASTUZUMAB [Suspect]
     Route: 042
     Dates: start: 20130711, end: 20130912
  7. TRASTUZUMAB [Suspect]
     Route: 042
     Dates: end: 20130204
  8. TRASTUZUMAB [Suspect]
     Route: 042
     Dates: start: 20131009, end: 20131030
  9. TAXOTERE [Concomitant]
     Indication: BREAST CANCER
     Route: 065
     Dates: start: 20081020, end: 200902
  10. VINORELBINE [Concomitant]
     Indication: BREAST CANCER
     Route: 065
     Dates: start: 20110726, end: 20111019
  11. PACLITAXEL [Concomitant]
     Indication: BREAST CANCER
     Route: 065
     Dates: start: 20130304, end: 20130614
  12. DEXAMETHASON [Concomitant]
     Indication: PREMEDICATION
     Route: 065
  13. TAVEGIL [Concomitant]
     Indication: PREMEDICATION
     Route: 065
  14. INSULIN [Concomitant]
     Indication: DIABETES MELLITUS

REACTIONS (9)
  - Chills [Unknown]
  - Convulsion [Unknown]
  - Hypersensitivity [Recovered/Resolved]
  - Anaphylactic shock [Unknown]
  - Appendicitis perforated [Unknown]
  - Bronchial haemorrhage [Recovered/Resolved]
  - Pelvic venous thrombosis [Unknown]
  - Vena cava thrombosis [Unknown]
  - Malignant neoplasm progression [Unknown]
